FAERS Safety Report 16585514 (Version 1)
Quarter: 2019Q3

REPORT INFORMATION
  Report Type: Spontaneous
  Country: GB (occurrence: GB)
  Receive Date: 20190717
  Receipt Date: 20190717
  Transmission Date: 20191004
  Serious: Yes (Hospitalization)
  Sender: FDA-Public Use
  Company Number: GB-ACTELION-A-US2019-193208

PATIENT
  Age: 60 Year
  Sex: Male

DRUGS (3)
  1. VENTAVIS [Suspect]
     Active Substance: ILOPROST
     Indication: PULMONARY HYPERTENSION
     Dosage: 5 MCG 6ID
     Route: 055
     Dates: start: 20120215
  2. SILDENAFIL. [Concomitant]
     Active Substance: SILDENAFIL
  3. MACITENTAN [Concomitant]
     Active Substance: MACITENTAN

REACTIONS (2)
  - Cardiac disorder [Unknown]
  - Dyspnoea [Unknown]

NARRATIVE: CASE EVENT DATE: 2019
